FAERS Safety Report 4335341-X (Version None)
Quarter: 2004Q2

REPORT INFORMATION
  Report Type: 
  Country: None (occurrence: None)
  Receive Date: 20040409
  Receipt Date: 20040330
  Transmission Date: 20050107
  Serious: Yes (Other)
  Sender: FDA-Public Use
  Company Number: PHBS2004CA04395

PATIENT
  Sex: Female

DRUGS (3)
  1. AREDIA [Suspect]
     Indication: HYPERCALCAEMIA OF MALIGNANCY
     Dosage: 60 MG/D
     Dates: start: 20040321, end: 20040321
  2. DIURETICS [Concomitant]
  3. VASOTEC [Concomitant]

REACTIONS (5)
  - BLOOD CREATININE INCREASED [None]
  - HYPERKALAEMIA [None]
  - HYPERTHERMIA [None]
  - KETOACIDOSIS [None]
  - RENAL FAILURE ACUTE [None]
